FAERS Safety Report 16523735 (Version 4)
Quarter: 2022Q1

REPORT INFORMATION
  Report Type: Spontaneous
  Country: US (occurrence: US)
  Receive Date: 20190703
  Receipt Date: 20220131
  Transmission Date: 20220424
  Serious: Yes (Hospitalization)
  Sender: FDA-Public Use
  Company Number: US-PFIZER INC-2017467690

PATIENT
  Age: 70 Year
  Sex: Female
  Weight: 99.79 kg

DRUGS (5)
  1. LYRICA [Suspect]
     Active Substance: PREGABALIN
     Indication: Sacroiliitis
     Dosage: 75 MG, THRICE A DAY
     Route: 048
  2. LYRICA [Suspect]
     Active Substance: PREGABALIN
     Indication: Neuralgia
     Dosage: 1 CAPSULE EVERY 8 HOURS AS NEEDED
     Route: 048
  3. LYRICA [Suspect]
     Active Substance: PREGABALIN
     Indication: Spinal osteoarthritis
  4. LYRICA [Suspect]
     Active Substance: PREGABALIN
     Indication: Diabetes mellitus
  5. LYRICA [Suspect]
     Active Substance: PREGABALIN
     Indication: Fibromyalgia

REACTIONS (2)
  - Feeling abnormal [Unknown]
  - Hypoacusis [Not Recovered/Not Resolved]
